FAERS Safety Report 19843197 (Version 1)
Quarter: 2021Q3

REPORT INFORMATION
  Report Type: Spontaneous
  Country: US (occurrence: US)
  Receive Date: 20210917
  Receipt Date: 20210917
  Transmission Date: 20211014
  Serious: Yes (Disabling, Other)
  Sender: FDA-Public Use
  Company Number: US-CELLTRION INC.-2021US012418

PATIENT

DRUGS (2)
  1. INFLECTRA [Suspect]
     Active Substance: INFLIXIMAB-DYYB
     Indication: RHEUMATOID ARTHRITIS
     Dosage: UNKNOWN DOSE. INFUSED VIA IV INFUSION EVERY 8 WEEKS.
     Route: 042
  2. METHOTREXATE. [Concomitant]
     Active Substance: METHOTREXATE
     Indication: RHEUMATOID ARTHRITIS
     Dosage: 2.5 MG, 3 PILLS ALL AT ONCE, ONCE A WEEK.

REACTIONS (9)
  - Cellulitis [Recovering/Resolving]
  - Product substitution issue [Unknown]
  - Weight fluctuation [Unknown]
  - Skin laceration [Unknown]
  - Contusion [Not Recovered/Not Resolved]
  - Condition aggravated [Unknown]
  - Hearing aid user [Unknown]
  - Skin atrophy [Not Recovered/Not Resolved]
  - Haemorrhage [Unknown]

NARRATIVE: CASE EVENT DATE: 20210802
